FAERS Safety Report 14393603 (Version 1)
Quarter: 2018Q1

REPORT INFORMATION
  Report Type: Spontaneous
  Country: US (occurrence: US)
  Receive Date: 20180112
  Receipt Date: 20180112
  Transmission Date: 20180509
  Serious: No
  Sender: FDA-Public Use
  Company Number: None

PATIENT
  Age: 44 Year
  Sex: Male
  Weight: 120.88 kg

DRUGS (1)
  1. ALBUTEROL. [Suspect]
     Active Substance: ALBUTEROL
     Indication: ASTHMA
     Dosage: DOSE - 2 PUFF(S)?FREQUENCY - OTHER
     Route: 055
     Dates: start: 20170824

REACTIONS (4)
  - Wheezing [None]
  - Cough [None]
  - Asthma [None]
  - Product substitution issue [None]

NARRATIVE: CASE EVENT DATE: 20171107
